FAERS Safety Report 25173116 (Version 1)
Quarter: 2025Q2

REPORT INFORMATION
  Report Type: Report from Study
  Country: US (occurrence: US)
  Receive Date: 20250408
  Receipt Date: 20250408
  Transmission Date: 20250717
  Serious: Yes (Hospitalization)
  Sender: ALNYLAM PHARMACEUTICALS
  Company Number: US-ALNYLAM PHARMACEUTICALS, INC.-ALN-2025-002260

PATIENT

DRUGS (1)
  1. GIVLAARI [Suspect]
     Active Substance: GIVOSIRAN SODIUM
     Indication: Porphyria acute
     Route: 065

REACTIONS (11)
  - Loss of consciousness [Unknown]
  - Chest discomfort [Unknown]
  - Confusional state [Unknown]
  - Migraine [Unknown]
  - Vomiting [Unknown]
  - Pain in extremity [Unknown]
  - Back pain [Unknown]
  - Renal pain [Unknown]
  - Eating disorder [Unknown]
  - Abdominal pain upper [Unknown]
  - Kidney infection [Unknown]
